FAERS Safety Report 8976510 (Version 2)
Quarter: 2013Q3

REPORT INFORMATION
  Report Type: Spontaneous
  Country: JP (occurrence: JP)
  Receive Date: 20121220
  Receipt Date: 20130712
  Transmission Date: 20140515
  Serious: Yes (Hospitalization)
  Sender: FDA-Public Use
  Company Number: JP-JNJFOC-20121204775

PATIENT
  Age: 85 Year
  Sex: Female

DRUGS (1)
  1. RISPERDAL [Suspect]
     Indication: BEHAVIOURAL AND PSYCHIATRIC SYMPTOMS OF DEMENTIA
     Route: 048
     Dates: start: 20120503, end: 20120505

REACTIONS (6)
  - Altered state of consciousness [Recovered/Resolved]
  - Hemiplegia [Unknown]
  - Urinary tract infection [Recovering/Resolving]
  - Dehydration [Recovered/Resolved]
  - Decreased appetite [Unknown]
  - Off label use [Unknown]
